FAERS Safety Report 7528725-X (Version None)
Quarter: 2011Q2

REPORT INFORMATION
  Report Type: 
  Country: None (occurrence: None)
  Receive Date: 20110607
  Receipt Date: 20110531
  Transmission Date: 20111010
  Serious: Yes (Other)
  Sender: FDA-Public Use
  Company Number: US-BRACCO-005603

PATIENT
  Sex: Male
  Weight: 79.36 kg

DRUGS (33)
  1. CARDURA [Concomitant]
  2. LOTENSIN [Concomitant]
  3. OPTIMARK [Suspect]
     Indication: TRANSPLANT EVALUATION
     Route: 042
     Dates: start: 20060525, end: 20060525
  4. CYTOXAN [Concomitant]
  5. VISIPAQUE [Concomitant]
     Indication: STENT PLACEMENT
     Dates: start: 20070220
  6. PROGRAF [Concomitant]
  7. OPTIMARK [Suspect]
     Indication: NUCLEAR MAGNETIC RESONANCE IMAGING
     Route: 042
     Dates: start: 20060525, end: 20060525
  8. LEVOTHYROXINE SODIUM [Concomitant]
  9. VISIPAQUE [Concomitant]
     Indication: CATHETERISATION CARDIAC
     Dates: start: 20060731
  10. MAGNEVIST [Suspect]
     Indication: ABDOMINAL PAIN
     Route: 042
     Dates: start: 20060206, end: 20060206
  11. EPOGEN [Concomitant]
  12. PREDNISONE [Concomitant]
  13. METOPROLOL SUCCINATE [Concomitant]
  14. MULTIHANCE [Suspect]
     Indication: ANGIOGRAM
     Route: 042
     Dates: start: 20071030, end: 20071030
  15. OPTIMARK [Suspect]
     Indication: VENOUS THROMBOSIS
     Route: 042
     Dates: start: 20060525, end: 20060525
  16. FERROUS SULFATE TAB [Concomitant]
  17. VALSARTAN [Concomitant]
  18. MULTIHANCE [Suspect]
     Indication: NUCLEAR MAGNETIC RESONANCE IMAGING
     Route: 042
     Dates: start: 20071030, end: 20071030
  19. PLAVIX [Concomitant]
  20. PHOSLO [Concomitant]
  21. OMNISCAN [Suspect]
     Indication: MAGNETIC RESONANCE CHOLANGIOPANCREATOGRAPHY
     Route: 042
     Dates: start: 20060112, end: 20060112
  22. OMNISCAN [Suspect]
     Indication: NUCLEAR MAGNETIC RESONANCE IMAGING
     Route: 042
     Dates: start: 20060112, end: 20060112
  23. SEVELAMER [Concomitant]
  24. MAGNEVIST [Suspect]
     Indication: NUCLEAR MAGNETIC RESONANCE IMAGING
     Route: 042
     Dates: start: 20060206, end: 20060206
  25. MAGNEVIST [Suspect]
     Indication: PANCREATITIS
     Route: 042
     Dates: start: 20060206, end: 20060206
  26. OMNISCAN [Suspect]
     Indication: RENAL FAILURE
     Route: 042
     Dates: start: 20060112, end: 20060112
  27. VISIPAQUE [Concomitant]
     Indication: ANGIOGRAM
     Dates: start: 20070220
  28. NORVASC [Concomitant]
  29. CLONIDINE [Concomitant]
  30. OMNISCAN [Suspect]
     Indication: PANCREATITIS
     Route: 042
     Dates: start: 20060112, end: 20060112
  31. NEPHROCAPS [Concomitant]
  32. WARFARIN SODIUM [Concomitant]
  33. ASPIRIN [Concomitant]

REACTIONS (1)
  - NEPHROGENIC SYSTEMIC FIBROSIS [None]
